FAERS Safety Report 7163217-1 (Version None)
Quarter: 2010Q4

REPORT INFORMATION
  Report Type: 
  Country: None (occurrence: None)
  Receive Date: 20101215
  Receipt Date: 20100316
  Transmission Date: 20110411
  Serious: Yes (Other)
  Sender: FDA-Public Use
  Company Number: GR-PFIZER INC-2010033315

PATIENT
  Age: 81 Year
  Sex: Female

DRUGS (3)
  1. LYRICA [Suspect]
     Indication: EPILEPSY
     Dosage: 75 MG, 1X/DAY
     Route: 048
     Dates: start: 20090814, end: 20100302
  2. RIVOTRIL [Suspect]
  3. DEPAKENE [Suspect]
     Indication: EPILEPSY
     Dosage: UNK
     Dates: start: 20090814

REACTIONS (5)
  - ABDOMINAL PAIN UPPER [None]
  - ABNORMAL BEHAVIOUR [None]
  - COMMUNICATION DISORDER [None]
  - EATING DISORDER [None]
  - STARING [None]
